FAERS Safety Report 9538801 (Version 2)
Quarter: 2013Q4

REPORT INFORMATION
  Report Type: Spontaneous
  Country: IT (occurrence: IT)
  Receive Date: 20130920
  Receipt Date: 20131011
  Transmission Date: 20140711
  Serious: Yes (Other)
  Sender: FDA-Public Use
  Company Number: PHHY2013IT104385

PATIENT
  Age: 77 Year
  Sex: Female

DRUGS (4)
  1. ZOMETA [Suspect]
     Indication: METASTASES TO BONE
     Dosage: 4 MG/KG
     Route: 042
     Dates: start: 20130226, end: 20130817
  2. DELTACORTENE [Concomitant]
     Indication: INFLAMMATORY PAIN
     Dosage: 5 MG/KG, UNK
     Route: 048
     Dates: start: 20130701, end: 20130817
  3. TARGIN [Concomitant]
     Indication: BONE PAIN
     Dosage: 20 MG/KG, UNK
     Route: 048
     Dates: start: 20130701, end: 20130817
  4. CHEMOTHERAPEUTICS [Concomitant]
     Dosage: UNK UKN, UNK

REACTIONS (1)
  - Osteonecrosis [Unknown]
